FAERS Safety Report 6381600-9 (Version None)
Quarter: 2009Q3

REPORT INFORMATION
  Report Type: 
  Country: None (occurrence: None)
  Receive Date: 20090925
  Receipt Date: 20090917
  Transmission Date: 20100115
  Serious: Yes (Other)
  Sender: FDA-Public Use
  Company Number: 09US003834

PATIENT
  Age: 63 Year
  Sex: Male
  Weight: 106.6 kg

DRUGS (6)
  1. NITETIME FREE CHRY 6HR LIQ COLD/FLU  RELIEF [Suspect]
     Indication: NASOPHARYNGITIS
     Dosage: 30 ML, SINGLE, ORAL
     Route: 048
     Dates: start: 20090908, end: 20090908
  2. NORVASC [Concomitant]
  3. TOPROL-XL [Concomitant]
  4. LISINOPRIL [Concomitant]
  5. LIPITOR [Concomitant]
  6. POTASSIUM CITRATE [Concomitant]

REACTIONS (3)
  - DYSPNOEA [None]
  - HYPERSENSITIVITY [None]
  - THROAT IRRITATION [None]
